FAERS Safety Report 13321689 (Version 2)
Quarter: 2018Q3

REPORT INFORMATION
  Report Type: Spontaneous
  Country: SE (occurrence: SE)
  Receive Date: 20170310
  Receipt Date: 20180719
  Transmission Date: 20181010
  Serious: Yes (Hospitalization, Other)
  Sender: FDA-Public Use
  Company Number: SE-PFIZER INC-2017100191

PATIENT
  Age: 58 Year
  Sex: Female

DRUGS (23)
  1. XALATAN [Suspect]
     Active Substance: LATANOPROST
     Dosage: 50 UG, UNK
     Dates: start: 201701, end: 201702
  2. BACTRIM [Concomitant]
     Active Substance: SULFAMETHOXAZOLE\TRIMETHOPRIM
  3. LANTUS [Concomitant]
     Active Substance: INSULIN GLARGINE
  4. DETREMIN [Concomitant]
  5. PREDNISOLON [Concomitant]
     Active Substance: PREDNISOLONE
  6. FURIX [Concomitant]
     Active Substance: FUROSEMIDE
     Dosage: UNK, AS NEEDED
  7. GLUCAGON. [Concomitant]
     Active Substance: GLUCAGON
     Dosage: UNK, AS NEEDED
  8. CANODERM [Concomitant]
     Dosage: UNK, AS NEEDED
  9. TROMBYL [Concomitant]
     Active Substance: ASPIRIN
  10. MIRTAZAPIN [Concomitant]
     Active Substance: MIRTAZAPINE
  11. BETOLVEX [Concomitant]
     Active Substance: CYANOCOBALAMIN
  12. ATORVASTATIN [Concomitant]
     Active Substance: ATORVASTATIN
  13. LEVAXIN [Concomitant]
     Active Substance: LEVOTHYROXINE SODIUM
  14. MYCOPHENOLATE MOFETIL. [Concomitant]
     Active Substance: MYCOPHENOLATE MOFETIL
  15. IMOVANE [Concomitant]
     Active Substance: ZOPICLONE
     Dosage: UNK, AS NEEDED
  16. COSOPT [Concomitant]
     Active Substance: DORZOLAMIDE HYDROCHLORIDE\TIMOLOL MALEATE
  17. HUMALOG [Concomitant]
     Active Substance: INSULIN LISPRO
  18. ADPORT [Concomitant]
     Active Substance: TACROLIMUS
  19. OPNOL [Concomitant]
  20. LORATADIN [Concomitant]
     Active Substance: LORATADINE
     Dosage: UNK, AS NEEDED
  21. DOXAZOSIN [Concomitant]
     Active Substance: DOXAZOSIN\DOXAZOSIN MESYLATE
  22. METOPROLOL. [Concomitant]
     Active Substance: METOPROLOL
  23. ALENDRONAT [Concomitant]
     Active Substance: ALENDRONATE SODIUM

REACTIONS (4)
  - Hypertension [Unknown]
  - Drug eruption [Recovered/Resolved]
  - Blood glucose fluctuation [Unknown]
  - Oedema [Unknown]

NARRATIVE: CASE EVENT DATE: 201701
